FAERS Safety Report 5150446-1 (Version None)
Quarter: 2006Q4

REPORT INFORMATION
  Report Type: 
  Country: None (occurrence: None)
  Receive Date: 20061114
  Receipt Date: 20061106
  Transmission Date: 20070319
  Serious: Yes (Hospitalization)
  Sender: FDA-Public Use
  Company Number: 2006PK02310

PATIENT
  Age: 82 Year
  Sex: Female
  Weight: 90 kg

DRUGS (4)
  1. ATACAND [Suspect]
     Indication: LEFT VENTRICULAR FAILURE
     Route: 048
     Dates: start: 20060502, end: 20060808
  2. SPIRONOLACTONE [Interacting]
  3. BELOC ZOK [Concomitant]
  4. FUROSEMIDE [Concomitant]

REACTIONS (2)
  - DRUG INTERACTION [None]
  - HYPERKALAEMIA [None]
